FAERS Safety Report 8600942-7 (Version None)
Quarter: 2012Q3

REPORT INFORMATION
  Report Type: 
  Country: None (occurrence: None)
  Receive Date: 20120805
  Receipt Date: 20120723
  Transmission Date: 20120928
  Serious: Yes (Hospitalization)
  Sender: FDA-Public Use
  Company Number: AUR-APL-2012-03251

PATIENT
  Age: 34 Year
  Sex: Male

DRUGS (7)
  1. PYRAZINAMIDE [Concomitant]
  2. LAMIVUDINE [Suspect]
     Indication: ANTIRETROVIRAL THERAPY
     Dosage: UNKNOW
  3. EFAVIRENZ [Suspect]
     Indication: ANTIRETROVIRAL THERAPY
     Dosage: UNKNOWN
  4. ETHAMBUTOL HYDROCHLORIDE [Concomitant]
  5. RIFAMPICIN [Concomitant]
  6. STAVUDINE [Suspect]
     Indication: ANTIRETROVIRAL THERAPY
     Dosage: UNKNOWN
  7. ISONIAZID [Concomitant]

REACTIONS (28)
  - DYSPNOEA PAROXYSMAL NOCTURNAL [None]
  - HEART SOUNDS ABNORMAL [None]
  - ELECTROCARDIOGRAM QT PROLONGED [None]
  - VENOUS PRESSURE JUGULAR INCREASED [None]
  - WHITE BLOOD CELL COUNT DECREASED [None]
  - PNEUMOCYSTIS JIROVECI PNEUMONIA [None]
  - SINUS TACHYCARDIA [None]
  - VENTRICULAR HYPOKINESIA [None]
  - CONDITION AGGRAVATED [None]
  - IMMUNE RECONSTITUTION SYNDROME [None]
  - COUGH [None]
  - DYSPNOEA [None]
  - NIGHT SWEATS [None]
  - OEDEMA PERIPHERAL [None]
  - CARDIOGENIC SHOCK [None]
  - HEPATOMEGALY [None]
  - EJECTION FRACTION DECREASED [None]
  - LEFT ATRIAL HYPERTROPHY [None]
  - CARDIAC FAILURE ACUTE [None]
  - ORTHOPNOEA [None]
  - RALES [None]
  - CARDIOTHORACIC RATIO INCREASED [None]
  - ELECTROCARDIOGRAM T WAVE ABNORMAL [None]
  - CARDIOMEGALY [None]
  - LEFT VENTRICULAR HYPERTROPHY [None]
  - HAEMOGLOBIN DECREASED [None]
  - PULMONARY TUBERCULOSIS [None]
  - ABDOMINAL PAIN [None]
